FAERS Safety Report 13621821 (Version 1)
Quarter: 2017Q2

REPORT INFORMATION
  Report Type: Spontaneous
  Country: US (occurrence: US)
  Receive Date: 20170607
  Receipt Date: 20170607
  Transmission Date: 20170830
  Serious: Yes (Hospitalization)
  Sender: FDA-Public Use
  Company Number: US-ROCHE-1845994

PATIENT
  Sex: Female

DRUGS (2)
  1. XELODA [Suspect]
     Active Substance: CAPECITABINE
     Route: 048
     Dates: start: 20161002
  2. XELODA [Suspect]
     Active Substance: CAPECITABINE
     Indication: PRODUCT USED FOR UNKNOWN INDICATION
     Route: 048
     Dates: start: 20160929

REACTIONS (12)
  - Dehydration [Recovering/Resolving]
  - Decreased appetite [Unknown]
  - Fatigue [Unknown]
  - Stoma site haemorrhage [Unknown]
  - Nausea [Unknown]
  - Pruritus [Unknown]
  - Oral disorder [Unknown]
  - Rectal discharge [Unknown]
  - Weight decreased [Unknown]
  - Skin discolouration [Unknown]
  - Diarrhoea [Recovering/Resolving]
  - Rash [Unknown]
